FAERS Safety Report 10354767 (Version 1)
Quarter: 2014Q3

REPORT INFORMATION
  Report Type: Spontaneous
  Country: US (occurrence: None)
  Receive Date: 20140729
  Receipt Date: 20140729
  Transmission Date: 20150326
  Serious: Yes (Hospitalization, Other)
  Sender: FDA-Public Use
  Company Number: None

PATIENT
  Age: 47 Year
  Sex: Female
  Weight: 63.5 kg

DRUGS (1)
  1. NITROFURN MONO 100 MG CAP MACROBID MYLA [Suspect]
     Active Substance: NITROFURANTOIN\NITROFURANTOIN MONOHYDRATE
     Indication: CYSTITIS
     Dosage: ONE CAPSULE/TWICE A DAY  TWICE DAILY ORAL
     Route: 048
     Dates: start: 20140327, end: 20140402

REACTIONS (9)
  - Paraesthesia [None]
  - Thrombosis [None]
  - Chills [None]
  - Rash [None]
  - Fatigue [None]
  - Epistaxis [None]
  - Pyrexia [None]
  - Dizziness [None]
  - Vomiting [None]

NARRATIVE: CASE EVENT DATE: 20140402
